FAERS Safety Report 23351913 (Version 3)
Quarter: 2024Q1

REPORT INFORMATION
  Report Type: Spontaneous
  Country: NL (occurrence: NL)
  Receive Date: 20231229
  Receipt Date: 20240122
  Transmission Date: 20240410
  Serious: Yes (Hospitalization, Other)
  Sender: FDA-Public Use
  Company Number: NL-ORGANON-O2312NLD002709

PATIENT
  Sex: Female

DRUGS (2)
  1. ETONOGESTREL [Suspect]
     Active Substance: ETONOGESTREL
     Dosage: 1 IMPLANT,
     Route: 059
     Dates: start: 20230914, end: 20231212
  2. PERINDOPRIL [Concomitant]
     Active Substance: PERINDOPRIL
     Dosage: 8 MILLIGRAM

REACTIONS (13)
  - Chest discomfort [Recovered/Resolved]
  - Cardiac disorder [Recovered/Resolved]
  - Adverse event [Recovered/Resolved]
  - Nausea [Unknown]
  - Limb discomfort [Unknown]
  - Constipation [Unknown]
  - Intermenstrual bleeding [Unknown]
  - Breast tenderness [Unknown]
  - Malaise [Unknown]
  - Asthenia [Unknown]
  - Dizziness [Unknown]
  - Dyspnoea [Unknown]
  - Chest discomfort [Unknown]

NARRATIVE: CASE EVENT DATE: 20230101
